FAERS Safety Report 6837734-5 (Version None)
Quarter: 2010Q3

REPORT INFORMATION
  Report Type: 
  Country: None (occurrence: None)
  Receive Date: 20100713
  Receipt Date: 20070521
  Transmission Date: 20110219
  Serious: No
  Sender: FDA-Public Use
  Company Number: US-PFIZER INC-2007042076

PATIENT
  Sex: Female
  Weight: 84.09 kg

DRUGS (6)
  1. CHANTIX [Suspect]
     Indication: SMOKING CESSATION THERAPY
     Dates: start: 20070515
  2. LITHIUM [Concomitant]
  3. DEPAKOTE [Concomitant]
  4. PROVIGIL [Concomitant]
  5. SYNTHROID [Concomitant]
  6. NEXIUM [Concomitant]
     Indication: HIATUS HERNIA

REACTIONS (4)
  - ABDOMINAL DISCOMFORT [None]
  - FEELING ABNORMAL [None]
  - NAUSEA [None]
  - SOMNOLENCE [None]
